FAERS Safety Report 7807068-0 (Version None)
Quarter: 2011Q4

REPORT INFORMATION
  Report Type: 
  Country: None (occurrence: None)
  Receive Date: 20111011
  Receipt Date: 20111007
  Transmission Date: 20120403
  Serious: No
  Sender: FDA-Public Use
  Company Number: US-PFIZER INC-2011240387

PATIENT
  Age: 4 Year
  Sex: Male
  Weight: 19.048 kg

DRUGS (1)
  1. CHILDREN'S ADVIL [Suspect]
     Indication: PYREXIA
     Dosage: ONE AND HALF TEASPOON (FREQUENCY UNKNOWN)
     Dates: start: 20111007

REACTIONS (3)
  - EYE DISORDER [None]
  - EYE SWELLING [None]
  - EYE PRURITUS [None]
